FAERS Safety Report 4479519-3 (Version None)
Quarter: 2004Q4

REPORT INFORMATION
  Report Type: 
  Country: None (occurrence: None)
  Receive Date: 20041015
  Receipt Date: 20040930
  Transmission Date: 20050328
  Serious: Yes (Life-Threatening)
  Sender: FDA-Public Use
  Company Number: TNZUK200400116

PATIENT
  Age: 73 Year
  Sex: Female

DRUGS (14)
  1. INNOHEP [Suspect]
     Indication: THROMBOSIS PROPHYLAXIS
     Dosage: 4500 IU, SUBCUTANEOUS
     Route: 058
     Dates: start: 20040514, end: 20040729
  2. DOXAZOSIN (DOXAZOSIN) [Concomitant]
  3. SENNA (SENNA) [Concomitant]
  4. DOCUSATE SODIUM (DOCUSATE SODIUM) [Concomitant]
  5. FUROSEMIDE [Concomitant]
  6. LEVOTHYROXINE SODIUM [Concomitant]
  7. LANSOPRAZOLE [Concomitant]
  8. ATORVASTATIN (ATORVASTATIN) [Concomitant]
  9. TRAMADOL HCL [Concomitant]
  10. ACETAMINOPHEN [Concomitant]
  11. BUDESONIDE (BUDESONIDE) [Concomitant]
  12. SALMETEROL (SALMETEROL) [Concomitant]
  13. ADCAL-D3 (LEKOVIT CA) [Concomitant]
  14. LINEZOLID (LINEZOLID) [Concomitant]

REACTIONS (2)
  - HYPERKALAEMIA [None]
  - HYPONATRAEMIA [None]
